FAERS Safety Report 25094814 (Version 1)
Quarter: 2025Q1

REPORT INFORMATION
  Report Type: Spontaneous
  Country: US (occurrence: None)
  Receive Date: 20250318
  Receipt Date: 20250318
  Transmission Date: 20250408
  Serious: Yes (Other)
  Sender: FDA-CTU
  Company Number: None

PATIENT
  Age: 43 Year
  Sex: Female
  Weight: 61.23 kg

DRUGS (12)
  1. BUPRENORPHINE HYDROCHLORIDE\NALOXONE HYDROCHLORIDE [Suspect]
     Active Substance: BUPRENORPHINE HYDROCHLORIDE\NALOXONE HYDROCHLORIDE
     Indication: Drug dependence
     Dosage: 1 TABLET(S) TWICE A DAY TAKEN UNDER THE TONGUE
     Route: 050
     Dates: start: 20250129, end: 20250131
  2. SUBTEXT [Concomitant]
  3. ALBUTEROL [Concomitant]
     Active Substance: ALBUTEROL
  4. PHENERGAN [Concomitant]
     Active Substance: PROMETHAZINE HYDROCHLORIDE
  5. ZOFRAN [Concomitant]
     Active Substance: ONDANSETRON HYDROCHLORIDE
  6. LIDOCAIN E PATCHES [Concomitant]
  7. LASIX [Concomitant]
     Active Substance: FUROSEMIDE
  8. PRILOSEC [Concomitant]
     Active Substance: OMEPRAZOLE MAGNESIUM
  9. AZELASTINE [Concomitant]
     Active Substance: AZELASTINE
  10. IMITREX [Concomitant]
     Active Substance: SUMATRIPTAN SUCCINATE
  11. FLONASE [Concomitant]
     Active Substance: FLUTICASONE PROPIONATE
  12. HERBAL NOS [Concomitant]
     Active Substance: HERBALS

REACTIONS (4)
  - Nausea [None]
  - Vomiting [None]
  - Chills [None]
  - Migraine [None]

NARRATIVE: CASE EVENT DATE: 20250129
